FAERS Safety Report 10557024 (Version 1)
Quarter: 2014Q4

REPORT INFORMATION
  Report Type: Spontaneous
  Country: US (occurrence: None)
  Receive Date: 20141030
  Receipt Date: 20141030
  Transmission Date: 20150529
  Serious: Yes (Disabling)
  Sender: FDA-Public Use
  Company Number: None

PATIENT
  Age: 66 Year
  Sex: Female
  Weight: 58.06 kg

DRUGS (1)
  1. RECLAST [Suspect]
     Active Substance: ZOLEDRONIC ACID
     Indication: OSTEOPOROSIS POSTMENOPAUSAL
     Dosage: INTO A VEIN
     Dates: start: 20140916, end: 20140916

REACTIONS (4)
  - Bone pain [None]
  - Hypersensitivity [None]
  - Asthma [None]
  - Spinal pain [None]

NARRATIVE: CASE EVENT DATE: 20140917
